FAERS Safety Report 7658757-2 (Version None)
Quarter: 2011Q3

REPORT INFORMATION
  Report Type: 
  Country: None (occurrence: None)
  Receive Date: 20110805
  Receipt Date: 20110801
  Transmission Date: 20111222
  Serious: Yes (Other)
  Sender: FDA-Public Use
  Company Number: JP-PFIZER INC-2011175419

PATIENT
  Age: 79 Year
  Sex: Male

DRUGS (1)
  1. ALDACTONE [Suspect]
     Dosage: 25 MG, DAILY
     Route: 048

REACTIONS (1)
  - MASTITIS [None]
